FAERS Safety Report 5089940-0 (Version None)
Quarter: 2006Q3

REPORT INFORMATION
  Report Type: 
  Country: None (occurrence: None)
  Receive Date: 20060823
  Receipt Date: 20060816
  Transmission Date: 20061208
  Serious: Yes (Death)
  Sender: FDA-Public Use
  Company Number: 2006-06-1619

PATIENT
  Age: 64 Year
  Sex: Male

DRUGS (8)
  1. INTRON A [Suspect]
     Indication: METASTATIC RENAL CELL CARCINOMA
     Dosage: SEE IMAGE
     Route: 058
     Dates: start: 20060504, end: 20060510
  2. INTRON A [Suspect]
     Indication: METASTATIC RENAL CELL CARCINOMA
     Dosage: SEE IMAGE
     Route: 058
     Dates: start: 20060511, end: 20060531
  3. SUTENT [Suspect]
     Indication: METASTATIC RENAL CELL CARCINOMA
     Dosage: 37.5 MG QD ORAL
     Route: 048
     Dates: start: 20060504, end: 20060531
  4. TOPROL-XL [Concomitant]
  5. LIPITOR [Concomitant]
  6. ECOTRIN [Concomitant]
  7. HYDROCHLOROTHIAZIDE [Concomitant]
  8. MULTIVITAMIN [Concomitant]

REACTIONS (2)
  - ALANINE AMINOTRANSFERASE INCREASED [None]
  - MYOCARDIAL INFARCTION [None]
